FAERS Safety Report 5085610-3 (Version None)
Quarter: 2006Q3

REPORT INFORMATION
  Report Type: 
  Country: None (occurrence: None)
  Receive Date: 20060731
  Receipt Date: 20060119
  Transmission Date: 20061208
  Serious: Yes (Other)
  Sender: FDA-Public Use
  Company Number: 200512899BWH

PATIENT
  Age: 62 Year
  Sex: Male

DRUGS (4)
  1. AVELOX [Suspect]
     Indication: CHRONIC OBSTRUCTIVE PULMONARY DISEASE
     Dosage: 400 MG, ONCE, INTRAVENOUS
     Route: 042
     Dates: start: 20050801
  2. TOPROL-XL [Concomitant]
  3. COUMADIN [Concomitant]
  4. LISINOPRIL [Concomitant]

REACTIONS (1)
  - ELECTROCARDIOGRAM QT PROLONGED [None]
